FAERS Safety Report 22136673 (Version 1)
Quarter: 2023Q1

REPORT INFORMATION
  Report Type: Spontaneous
  Country: US (occurrence: US)
  Receive Date: 20230324
  Receipt Date: 20230324
  Transmission Date: 20230418
  Serious: No
  Sender: FDA-Public Use
  Company Number: US-LUNDBECK-DKLU3059298

PATIENT
  Age: 6 Month
  Sex: Male

DRUGS (6)
  1. SABRIL [Suspect]
     Active Substance: VIGABATRIN
     Indication: Infantile spasms
     Dosage: MIX 1 PACKET IN 10ML WATER AND GIVE 10ML BY MOUTH IN THE MORNING. MIX 2 PACKET IN 20ML WATER AND GI
     Route: 048
     Dates: start: 202301
  2. SABRIL [Suspect]
     Active Substance: VIGABATRIN
     Dosage: MIX 1 PACKET IN 10ML WATER AND GIVE 10ML BY MOUTH IN THE MORNING. MIX 2 PACKET IN 20ML WATER AND GI
     Route: 048
     Dates: start: 202301
  3. ACTHAR [Suspect]
     Active Substance: CORTICOTROPIN
     Indication: Product used for unknown indication
     Route: 030
  4. ACTHAR [Suspect]
     Active Substance: CORTICOTROPIN
     Route: 030
  5. ACTHAR [Suspect]
     Active Substance: CORTICOTROPIN
     Route: 030
  6. ACTHAR [Suspect]
     Active Substance: CORTICOTROPIN
     Route: 030

REACTIONS (2)
  - Vomiting [Unknown]
  - Constipation [Unknown]
